FAERS Safety Report 7729561-1 (Version None)
Quarter: 2011Q3

REPORT INFORMATION
  Report Type: 
  Country: None (occurrence: None)
  Receive Date: 20110906
  Receipt Date: 20110825
  Transmission Date: 20111222
  Serious: Yes (Hospitalization, Other)
  Sender: FDA-Public Use
  Company Number: JP-SANOFI-AVENTIS-2011SA039856

PATIENT
  Age: 83 Year
  Sex: Female
  Weight: 46.4 kg

DRUGS (11)
  1. HEPARIN SODIUM [Concomitant]
     Dosage: 1 BOTTLE/1 TIMES
     Route: 042
     Dates: start: 20110614, end: 20110616
  2. PIPERACILLIN SODIUM [Concomitant]
     Indication: INFECTION PROPHYLAXIS
     Route: 042
     Dates: start: 20110616, end: 20110618
  3. DIOVAN [Concomitant]
     Indication: HYPERTENSION
     Route: 048
     Dates: start: 20110613, end: 20110629
  4. LANSOPRAZOLE [Concomitant]
     Indication: GASTRIC ULCER
     Route: 048
     Dates: start: 20110613
  5. ENOXAPARIN SODIUM [Suspect]
     Route: 058
     Dates: start: 20110618, end: 20110619
  6. WARFARIN SODIUM [Concomitant]
     Indication: THROMBOSIS PROPHYLAXIS
     Dosage: 1.5 T/1 TIME
     Route: 048
     Dates: start: 20110613
  7. DIGOXIN [Concomitant]
     Route: 048
     Dates: start: 20110617, end: 20110620
  8. NORVASC [Concomitant]
     Indication: HYPERTENSION
     Route: 048
     Dates: start: 20110613
  9. AMARYL [Concomitant]
     Route: 048
     Dates: start: 20110613, end: 20110620
  10. ALLOPURINOL [Concomitant]
     Dosage: STRENGTH: 100 MGDOSE: 0.5T/1 TIME
     Route: 048
     Dates: start: 20110613, end: 20110620
  11. LASIX [Concomitant]
     Indication: CARDIAC FAILURE
     Route: 042
     Dates: start: 20110614, end: 20110615

REACTIONS (5)
  - VOMITING [None]
  - JAUNDICE [None]
  - HEPATITIS ACUTE [None]
  - CARDIAC FAILURE CONGESTIVE [None]
  - PYREXIA [None]
